FAERS Safety Report 7659375-2 (Version None)
Quarter: 2011Q3

REPORT INFORMATION
  Report Type: 
  Country: None (occurrence: None)
  Receive Date: 20110805
  Receipt Date: 20110801
  Transmission Date: 20111222
  Serious: Yes (Life-Threatening)
  Sender: FDA-Public Use
  Company Number: IT-CELGENEUS-083-20785-11080227

PATIENT
  Sex: Female

DRUGS (3)
  1. THALIDOMIDE [Suspect]
     Indication: MULTIPLE MYELOMA
     Dosage: 100 MILLIGRAM
     Route: 048
     Dates: start: 20110318, end: 20110421
  2. PREDNISONE [Concomitant]
     Route: 048
     Dates: start: 20110322, end: 20110328
  3. ALKERAN [Concomitant]
     Route: 048
     Dates: start: 20110322, end: 20110328

REACTIONS (1)
  - SYNCOPE [None]
